FAERS Safety Report 14757271 (Version 1)
Quarter: 2018Q2

REPORT INFORMATION
  Report Type: Spontaneous
  Country: US (occurrence: US)
  Receive Date: 20180409
  Receipt Date: 20180409
  Transmission Date: 20180711
  Serious: Yes (Hospitalization)
  Sender: FDA-Public Use
  Company Number: None

PATIENT
  Sex: Female

DRUGS (1)
  1. DOVE SENSITIVE 24H INVISIBLE SOLID ANTIPERSPIRANT DEODORANT [Suspect]
     Active Substance: ALUMINUM CHLOROHYDRATE
     Route: 061

REACTIONS (1)
  - Hypersensitivity [None]

NARRATIVE: CASE EVENT DATE: 20180404
